FAERS Safety Report 6677939-X (Version None)
Quarter: 2010Q2

REPORT INFORMATION
  Report Type: 
  Country: None (occurrence: None)
  Receive Date: 20100412
  Receipt Date: 20100330
  Transmission Date: 20101027
  Serious: Yes (Hospitalization)
  Sender: FDA-Public Use
  Company Number: ES-ELI_LILLY_AND_COMPANY-ES201003008363

PATIENT
  Sex: Female
  Weight: 52 kg

DRUGS (8)
  1. FORTEO [Suspect]
     Indication: OSTEOPOROSIS
     Dosage: 20 UG, DAILY (1/D)
     Route: 058
     Dates: start: 20091201
  2. NATECAL [Concomitant]
     Dosage: 10 MG, DAILY (1/D)
     Route: 065
  3. NITROGLYCERIN [Concomitant]
     Dosage: 10 MG, DAILY (1/D)
     Route: 065
  4. ASPIRIN [Concomitant]
     Dosage: 100 MG, DAILY (1/D)
     Route: 065
  5. ATORVASTATIN CALCIUM [Concomitant]
     Dosage: 20 MG, DAILY (1/D)
     Route: 065
  6. PROCORALAN [Concomitant]
     Dosage: 2 D/F, DAILY (1/D)
     Route: 065
  7. NEXIUM [Concomitant]
     Dosage: 20 MG, DAILY (1/D)
     Route: 065
  8. NAPROSYN [Concomitant]
     Dosage: 2 MG, DAILY (1/D)
     Route: 065

REACTIONS (2)
  - ANGINA PECTORIS [None]
  - MYOCARDIAL INFARCTION [None]
